FAERS Safety Report 4967140-X (Version None)
Quarter: 2006Q2

REPORT INFORMATION
  Report Type: 
  Country: None (occurrence: None)
  Receive Date: 20060404
  Receipt Date: 20060320
  Transmission Date: 20061013
  Serious: Yes (Death, Hospitalization)
  Sender: FDA-Public Use
  Company Number: 2006S1001311

PATIENT
  Age: 43 Year
  Sex: Female
  Weight: 83 kg

DRUGS (8)
  1. CLOZAPINE [Suspect]
     Indication: PSYCHOTIC DISORDER
     Dosage: 600 MG;QD;ORAL
     Route: 048
     Dates: start: 20060101, end: 20060201
  2. FULVESTRANT [Concomitant]
  3. HALOPERIDOL [Concomitant]
  4. FOLIC ACID [Concomitant]
  5. VALPROATE SODIUM [Concomitant]
  6. NICOTINE [Concomitant]
  7. LITHIUM [Concomitant]
  8. FLUPHENAZINE [Concomitant]

REACTIONS (1)
  - THROMBOTIC THROMBOCYTOPENIC PURPURA [None]
